FAERS Safety Report 9201165 (Version 1)
Quarter: 2013Q2

REPORT INFORMATION
  Report Type: Spontaneous
  Country: BR (occurrence: BR)
  Receive Date: 20130401
  Receipt Date: 20130401
  Transmission Date: 20140414
  Serious: Yes (Death)
  Sender: FDA-Public Use
  Company Number: PHHY2013BR029965

PATIENT
  Sex: 0

DRUGS (2)
  1. GLIVEC [Suspect]
     Indication: CHRONIC MYELOID LEUKAEMIA
     Dosage: 400 MG, UNK
  2. DASATINIB [Suspect]
     Dosage: 140 MG, UNK

REACTIONS (2)
  - Death [Fatal]
  - No therapeutic response [Unknown]
